FAERS Safety Report 25950979 (Version 2)
Quarter: 2025Q4

REPORT INFORMATION
  Report Type: Spontaneous
  Country: US (occurrence: US)
  Receive Date: 20251023
  Receipt Date: 20251126
  Transmission Date: 20260117
  Serious: No
  Sender: HETERO
  Company Number: US-HETERO-HET2025US06175

PATIENT
  Age: 78 Year
  Sex: Male

DRUGS (1)
  1. MAGNESIUM SULFATE\POTASSIUM CHLORIDE\SODIUM SULFATE [Suspect]
     Active Substance: MAGNESIUM SULFATE\POTASSIUM CHLORIDE\SODIUM SULFATE
     Indication: Bowel preparation
     Dosage: UNK
     Route: 065
     Dates: start: 20251008

REACTIONS (1)
  - Therapy non-responder [Unknown]

NARRATIVE: CASE EVENT DATE: 20251009
